FAERS Safety Report 10060719 (Version 3)
Quarter: 2014Q2

REPORT INFORMATION
  Report Type: Spontaneous
  Country: US (occurrence: US)
  Receive Date: 20140404
  Receipt Date: 20140512
  Transmission Date: 20141212
  Serious: Yes (Other)
  Sender: FDA-Public Use
  Company Number: CHPA2014US004771

PATIENT
  Age: 57 Year
  Sex: Female

DRUGS (7)
  1. EXCEDRIN UNKNOWN [Suspect]
     Indication: MIGRAINE
     Dosage: 2 DF, UNK
  2. EXCEDRIN UNKNOWN [Suspect]
     Indication: HEADACHE
  3. EXCEDRIN UNKNOWN [Suspect]
     Indication: IMMUNODEFICIENCY COMMON VARIABLE
  4. EXCEDRIN UNKNOWN [Suspect]
     Indication: OFF LABEL USE
  5. TYLENOL [Concomitant]
  6. ASPIRIN [Concomitant]
  7. BACTRIM DS [Concomitant]

REACTIONS (4)
  - Immunodeficiency common variable [Unknown]
  - Thoracic vertebral fracture [Unknown]
  - Shoulder deformity [Unknown]
  - Fall [Unknown]
